FAERS Safety Report 17148546 (Version 1)
Quarter: 2019Q4

REPORT INFORMATION
  Report Type: Spontaneous
  Country: US (occurrence: US)
  Receive Date: 20191212
  Receipt Date: 20191212
  Transmission Date: 20200122
  Serious: Yes (Death, Other)
  Sender: FDA-Public Use
  Company Number: US-VISTAPHARM, INC.-VER201912-001405

PATIENT
  Age: 37 Year
  Sex: Male

DRUGS (1)
  1. HYDROCODONE AND ACETAMINOPHEN [Suspect]
     Active Substance: ACETAMINOPHEN\HYDROCODONE
     Indication: PRODUCT USED FOR UNKNOWN INDICATION
     Dosage: UNKNOWN

REACTIONS (12)
  - Depressed level of consciousness [Unknown]
  - Pancreatitis [Unknown]
  - Toxicity to various agents [Fatal]
  - Coma [Unknown]
  - Acute kidney injury [Unknown]
  - Thrombocytopenia [Unknown]
  - Metabolic acidosis [Unknown]
  - Coagulopathy [Unknown]
  - Hypoglycaemia [Unknown]
  - Hepatotoxicity [Unknown]
  - Hypotension [Unknown]
  - Anion gap [Unknown]
